FAERS Safety Report 5596366-X (Version None)
Quarter: 2007Q4

REPORT INFORMATION
  Report Type: 
  Country: None (occurrence: None)
  Receive Date: 20071219
  Receipt Date: 20070823
  Transmission Date: 20080405
  Serious: Yes (Other)
  Sender: FDA-Public Use
  Company Number: PHEH2007US09127

PATIENT
  Age: 77 Year
  Sex: Female
  Weight: 55.4 kg

DRUGS (6)
  1. PAMIDRONATE DISODIUM [Suspect]
     Indication: OSTEOPOROSIS
     Dosage: 30MG OVER 90 MINUTES, INFUSION
     Dates: start: 20060401, end: 20070601
  2. PAXIL [Concomitant]
  3. ASACOL [Concomitant]
  4. DIOVAN HCT [Concomitant]
  5. ARIMIDEX [Concomitant]
  6. TOPROL-XL [Concomitant]

REACTIONS (1)
  - HYPOTENSION [None]
